FAERS Safety Report 25749290 (Version 2)
Quarter: 2025Q4

REPORT INFORMATION
  Report Type: Spontaneous
  Country: JP (occurrence: JP)
  Receive Date: 20250902
  Receipt Date: 20251015
  Transmission Date: 20260119
  Serious: Yes (Other)
  Sender: GE HEALTHCARE
  Company Number: JP-GEHPL-2025JSU011904AA

PATIENT
  Age: 67 Year
  Sex: Male

DRUGS (10)
  1. OMNIPAQUE [Suspect]
     Active Substance: IOHEXOL
     Indication: Computerised tomogram
     Dosage: 98 ML, TOTAL
     Route: 042
     Dates: start: 20250805, end: 20250805
  2. ACETAMINOPHEN [Concomitant]
     Active Substance: ACETAMINOPHEN
     Indication: Analgesic therapy
     Dosage: 100 ML
     Dates: start: 20250727
  3. AMPICILLIN SODIUM\SULBACTAM SODIUM [Concomitant]
     Active Substance: AMPICILLIN SODIUM\SULBACTAM SODIUM
     Indication: Infection
     Dosage: UNK
     Dates: start: 20250731
  4. SODIUM CHLORIDE [Concomitant]
     Active Substance: SODIUM CHLORIDE
     Indication: Infection
     Dosage: 100 ML
     Dates: start: 20250731
  5. MIYA-BM [Concomitant]
     Active Substance: CLOSTRIDIUM BUTYRICUM SPORES STRAIN M-55
     Route: 048
  6. SPIRONOLACTONE [Concomitant]
     Active Substance: SPIRONOLACTONE
     Route: 048
  7. FUROSEMIDE [Concomitant]
     Active Substance: FUROSEMIDE
     Route: 048
  8. VONOPRAZAN FUMARATE [Concomitant]
     Active Substance: VONOPRAZAN FUMARATE
     Route: 048
  9. SAMSCA [Concomitant]
     Active Substance: TOLVAPTAN
     Route: 048
  10. SYMPROIC [Concomitant]
     Active Substance: NALDEMEDINE TOSYLATE
     Route: 048

REACTIONS (5)
  - Gaze palsy [Unknown]
  - Dyspnoea [Recovered/Resolved]
  - Nausea [Recovered/Resolved]
  - Vomiting [Recovered/Resolved]
  - Dysphonia [Unknown]

NARRATIVE: CASE EVENT DATE: 20250805
